FAERS Safety Report 9528813 (Version 1)
Quarter: 2013Q2

REPORT INFORMATION
  Report Type: Spontaneous
  Country: US (occurrence: None)
  Receive Date: 20130401
  Receipt Date: 20130401
  Transmission Date: 20140414
  Serious: Yes (Hospitalization)
  Sender: FDA-Public Use
  Company Number: PHEH2012US023850

PATIENT
  Age: 74 Year
  Sex: Female

DRUGS (7)
  1. EXELON PATCH (RIVASTIGMINE) TRANS THERAPEUTIC SYSTEM [Suspect]
     Indication: DEMENTIA
     Route: 062
  2. CARBIDOPA LEVODOPA (CARBIDOPA, LEVODOPA) [Concomitant]
  3. FUROSEMIDE (FUROSEMIDE) [Concomitant]
  4. TRAZODONE (TRAZODONE) [Concomitant]
  5. AMLODIPINE (AMLODIPINE) [Concomitant]
  6. LORAZEPAM (LORAZEPAM) [Concomitant]
  7. WELLBUTRIN (BUPROPION HYDROCHLORIDE) [Concomitant]

REACTIONS (7)
  - Fall [None]
  - Nervous system disorder [None]
  - Concomitant disease progression [None]
  - Dysstasia [None]
  - General physical health deterioration [None]
  - Movement disorder [None]
  - Gait disturbance [None]
